FAERS Safety Report 8336538-4 (Version None)
Quarter: 2012Q2

REPORT INFORMATION
  Report Type: 
  Country: None (occurrence: None)
  Receive Date: 20120501
  Receipt Date: 20120423
  Transmission Date: 20120825
  Serious: Yes (Death)
  Sender: FDA-Public Use
  Company Number: DKLU1078672

PATIENT
  Age: 13 Year
  Sex: Male
  Weight: 5.45 kg

DRUGS (5)
  1. PREDNISONE TAB [Concomitant]
  2. CLONAZEPAM [Concomitant]
  3. SABRIL [Suspect]
     Indication: INFANTILE SPASMS
     Dosage: SEE IMAGE, WEEK 2
     Route: 048
     Dates: start: 20110712
  4. KEPPRA [Concomitant]
  5. TOPAMAX [Concomitant]

REACTIONS (1)
  - DEATH [None]
